FAERS Safety Report 4416659-9 (Version None)
Quarter: 2004Q3

REPORT INFORMATION
  Report Type: 
  Country: None (occurrence: None)
  Receive Date: 20040802
  Receipt Date: 20040715
  Transmission Date: 20050211
  Serious: Yes (Hospitalization)
  Sender: FDA-Public Use
  Company Number: 169793

PATIENT
  Age: 61 Year
  Sex: Male

DRUGS (5)
  1. AVONEX [Suspect]
     Indication: MULTIPLE SCLEROSIS
     Dates: start: 20011203, end: 20030801
  2. AVONEX [Suspect]
     Indication: MULTIPLE SCLEROSIS
     Dosage: 30 MCG QW IM
     Route: 030
     Dates: start: 20030801
  3. NEURONTIN [Concomitant]
  4. OXYCONTIN [Concomitant]
  5. PROTONIX [Concomitant]

REACTIONS (10)
  - ADRENAL ADENOMA [None]
  - BREAST MASS [None]
  - CHEST INJURY [None]
  - FALL [None]
  - INFLUENZA LIKE ILLNESS [None]
  - LYMPHADENOPATHY [None]
  - NON-SMALL CELL LUNG CANCER STAGE I [None]
  - RIB FRACTURE [None]
  - TREATMENT NONCOMPLIANCE [None]
  - TUMOUR NECROSIS [None]
